FAERS Safety Report 9060992 (Version 3)
Quarter: 2013Q3

REPORT INFORMATION
  Report Type: Spontaneous
  Country: US (occurrence: US)
  Receive Date: 20130213
  Receipt Date: 20130710
  Transmission Date: 20140515
  Serious: Yes (Hospitalization)
  Sender: FDA-Public Use
  Company Number: US-BIOGENIDEC-2013BI012870

PATIENT
  Age: 41 Year
  Sex: Female

DRUGS (5)
  1. TYSABRI [Suspect]
     Indication: MULTIPLE SCLEROSIS
     Route: 042
     Dates: start: 20120622
  2. AMITRIPTYLINE [Concomitant]
  3. AMPYRA [Concomitant]
  4. GABAPENTIN [Concomitant]
  5. TIZANIDINE HCL [Concomitant]

REACTIONS (4)
  - Muscle spasticity [Recovered/Resolved]
  - Stress [Not Recovered/Not Resolved]
  - Joint stiffness [Not Recovered/Not Resolved]
  - Arthralgia [Not Recovered/Not Resolved]
